FAERS Safety Report 8184050-8 (Version None)
Quarter: 2012Q1

REPORT INFORMATION
  Report Type: 
  Country: None (occurrence: None)
  Receive Date: 20120305
  Receipt Date: 20120223
  Transmission Date: 20120608
  Serious: Yes (Other)
  Sender: FDA-Public Use
  Company Number: US-ROCHE-794880

PATIENT
  Sex: Male
  Weight: 97.61 kg

DRUGS (2)
  1. ACCUTANE [Suspect]
     Indication: ACNE
     Route: 065
     Dates: start: 20071101, end: 20080501
  2. CLARAVIS [Suspect]
     Indication: ACNE
     Route: 065
     Dates: start: 20071101, end: 20080501

REACTIONS (1)
  - INJURY [None]
